FAERS Safety Report 6073780-X (Version None)
Quarter: 2009Q1

REPORT INFORMATION
  Report Type: 
  Country: None (occurrence: None)
  Receive Date: 20090209
  Receipt Date: 20090209
  Transmission Date: 20090719
  Serious: No
  Sender: FDA-Public Use
  Company Number: None

PATIENT
  Age: 56 Year
  Sex: Female
  Weight: 58.9676 kg

DRUGS (1)
  1. RECLAST [Suspect]
     Indication: OSTEOPOROSIS
     Dosage: ONCE A YEAR INFUSION YEARLY
     Dates: start: 20090115, end: 20090115

REACTIONS (3)
  - ARTHRALGIA [None]
  - BONE PAIN [None]
  - DRUG INEFFECTIVE [None]
